FAERS Safety Report 19650693 (Version 1)
Quarter: 2021Q3

REPORT INFORMATION
  Report Type: Spontaneous
  Country: US (occurrence: US)
  Receive Date: 20210802
  Receipt Date: 20210802
  Transmission Date: 20211014
  Serious: No
  Sender: FDA-Public Use
  Company Number: US-GALDERMA-US2021013431

PATIENT

DRUGS (3)
  1. DIFFERIN GEL [Suspect]
     Active Substance: ADAPALENE
     Indication: ACNE CYSTIC
     Dosage: 1 DOSAGE FORM
     Route: 061
  2. DIFFERIN GENTLE CLEANSER [Suspect]
     Active Substance: COSMETICS
     Indication: PRODUCT USED FOR UNKNOWN INDICATION
     Dosage: 1 DOSAGE FORM
     Route: 061
  3. WITCH HAZEL [HAMAMELIS VIRGINIANA EXTRACT] [Concomitant]
     Indication: THERAPEUTIC SKIN CARE TOPICAL
     Dosage: 1 DOSAGE FORM
     Route: 061

REACTIONS (2)
  - Product use in unapproved indication [Recovered/Resolved]
  - Dry skin [Unknown]
